FAERS Safety Report 4748678-7 (Version None)
Quarter: 2005Q3

REPORT INFORMATION
  Report Type: 
  Country: None (occurrence: None)
  Receive Date: 20050819
  Receipt Date: 20050804
  Transmission Date: 20060218
  Serious: Yes (Death, Hospitalization, Other)
  Sender: FDA-Public Use
  Company Number: HQWYE709204AUG05

PATIENT
  Age: 77 Year
  Sex: Female

DRUGS (2)
  1. ENBREL [Suspect]
     Indication: RHEUMATOID ARTHRITIS
     Route: 058
     Dates: start: 20050711
  2. METHYLPREDNISOLONE [Concomitant]
     Dosage: 8 MG AT UNKNOWN FREQUENCY

REACTIONS (3)
  - BURSITIS INFECTIVE [None]
  - DEATH [None]
  - LUNG DISORDER [None]
